FAERS Safety Report 23120692 (Version 1)
Quarter: 2023Q4

REPORT INFORMATION
  Report Type: Spontaneous
  Country: US (occurrence: US)
  Receive Date: 20231029
  Receipt Date: 20231029
  Transmission Date: 20240110
  Serious: No
  Sender: FDA-Public Use
  Company Number: US-TEVA-2023-US-2939455

PATIENT
  Age: 45 Year
  Sex: Female
  Weight: 112.49 kg

DRUGS (4)
  1. ALBUTEROL SULFATE [Suspect]
     Active Substance: ALBUTEROL SULFATE
     Indication: Asthma
     Route: 065
     Dates: start: 202310
  2. ALBUTEROL SULFATE [Suspect]
     Active Substance: ALBUTEROL SULFATE
     Route: 065
     Dates: start: 202310
  3. PROAIR HFA [Suspect]
     Active Substance: ALBUTEROL SULFATE
     Indication: Asthma
     Route: 065
  4. PROAIR HFA [Suspect]
     Active Substance: ALBUTEROL SULFATE

REACTIONS (3)
  - Chest discomfort [Unknown]
  - Drug ineffective [Unknown]
  - Product use in unapproved indication [Unknown]
